FAERS Safety Report 7898486-3 (Version None)
Quarter: 2011Q4

REPORT INFORMATION
  Report Type: 
  Country: None (occurrence: None)
  Receive Date: 20111107
  Receipt Date: 20111031
  Transmission Date: 20120403
  Serious: Yes (Other)
  Sender: FDA-Public Use
  Company Number: FR-BAXTER-2011BH034780

PATIENT
  Age: 4 Day
  Sex: Male

DRUGS (5)
  1. ANTIHEMOPHILIC FACTOR NOS [Suspect]
     Indication: HAEMOPHILIA
     Route: 065
  2. FEIBA [Suspect]
     Indication: HAEMOPHILIA
  3. FACTOR VIIA, RECOMBINANT [Suspect]
     Route: 065
  4. FACTOR VIIA, RECOMBINANT [Suspect]
     Route: 065
  5. FACTOR VIIA, RECOMBINANT [Suspect]
     Indication: HAEMOPHILIA
     Route: 065

REACTIONS (3)
  - HAEMOTHORAX [None]
  - FACTOR VIII INHIBITION [None]
  - DRUG INEFFECTIVE [None]
